FAERS Safety Report 19129499 (Version 3)
Quarter: 2021Q4

REPORT INFORMATION
  Report Type: Spontaneous
  Country: US (occurrence: US)
  Receive Date: 20210413
  Receipt Date: 20211129
  Transmission Date: 20220303
  Serious: Yes (Other)
  Sender: FDA-Public Use
  Company Number: US-PFIZER INC-2021359515

PATIENT
  Age: 59 Year
  Sex: Female

DRUGS (1)
  1. XELJANZ XR [Suspect]
     Active Substance: TOFACITINIB CITRATE
     Indication: Rheumatoid arthritis
     Dosage: 11 MG
     Dates: start: 20201214, end: 20211025

REACTIONS (5)
  - Cerebrovascular accident [Unknown]
  - Blindness [Unknown]
  - Arteriosclerosis [Unknown]
  - Headache [Recovered/Resolved]
  - Therapeutic product effect incomplete [Unknown]
